FAERS Safety Report 16106728 (Version 2)
Quarter: 2019Q2

REPORT INFORMATION
  Report Type: Report from Study
  Country: US (occurrence: US)
  Receive Date: 20190322
  Receipt Date: 20190409
  Transmission Date: 20190711
  Serious: Yes (Hospitalization)
  Sender: FDA-Public Use
  Company Number: US-BAYER-2019-026244

PATIENT
  Age: 55 Year
  Sex: Male

DRUGS (4)
  1. STIVARGA [Suspect]
     Active Substance: REGORAFENIB
     Indication: COLORECTAL CANCER METASTATIC
     Dosage: DAILY DOSE 80 MG (WITH LOW FAT MEAL FOR 21 DAYS ON AND 7 DAYS OFF)
     Route: 048
     Dates: start: 20190205, end: 20190209
  2. STIVARGA [Suspect]
     Active Substance: REGORAFENIB
     Indication: COLORECTAL CANCER METASTATIC
     Dosage: DAILY DOSE 80 MG
     Route: 048
     Dates: start: 20190314, end: 201903
  3. STIVARGA [Suspect]
     Active Substance: REGORAFENIB
     Indication: COLORECTAL CANCER METASTATIC
     Dosage: DAILY DOSE 80 MG (DAILY DOSE 80 MG (WITH LOW FAT MEAL FOR 21 DAYS ON AND 7 DAYS OFF)
     Route: 048
     Dates: start: 20190212, end: 20190228
  4. STIVARGA [Suspect]
     Active Substance: REGORAFENIB
     Indication: COLORECTAL CANCER METASTATIC
     Dosage: DAILY DOSE 40 MG
     Route: 048
     Dates: start: 20190402

REACTIONS (4)
  - Diarrhoea [Recovered/Resolved]
  - Sepsis [None]
  - Pain in extremity [Recovered/Resolved]
  - Off label use [None]

NARRATIVE: CASE EVENT DATE: 20190205
